FAERS Safety Report 15480912 (Version 1)
Quarter: 2018Q4

REPORT INFORMATION
  Report Type: Report from Study
  Country: None (occurrence: GB)
  Receive Date: 20181010
  Receipt Date: 20181010
  Transmission Date: 20190205
  Serious: Yes (Other)
  Sender: FDA-Public Use
  Company Number: GB-ABBVIE-18K-167-2511478-00

PATIENT
  Age: 20 Year
  Sex: Female
  Weight: 58.5 kg

DRUGS (2)
  1. HUMIRA [Suspect]
     Active Substance: ADALIMUMAB
     Route: 058
     Dates: end: 2017
  2. HUMIRA [Suspect]
     Active Substance: ADALIMUMAB
     Indication: CROHN^S DISEASE
     Route: 058
     Dates: start: 201512, end: 201612

REACTIONS (12)
  - Injection site pain [Recovered/Resolved]
  - Epistaxis [Recovered/Resolved]
  - Tonsillitis [Recovered/Resolved]
  - Rhinitis [Recovered/Resolved]
  - Loss of consciousness [Recovered/Resolved]
  - Folliculitis [Recovered/Resolved]
  - Laryngitis [Recovered/Resolved]
  - Acne [Recovered/Resolved]
  - Skin infection [Unknown]
  - Loss of consciousness [Recovered/Resolved]
  - Abscess [Recovered/Resolved]
  - Lower respiratory tract infection [Recovered/Resolved]

NARRATIVE: CASE EVENT DATE: 201512
